FAERS Safety Report 7484270-1 (Version None)
Quarter: 2011Q2

REPORT INFORMATION
  Report Type: 
  Country: None (occurrence: None)
  Receive Date: 20110517
  Receipt Date: 20110509
  Transmission Date: 20111010
  Serious: Yes (Other)
  Sender: FDA-Public Use
  Company Number: AU-ROXANE LABORATORIES, INC.-2011-RO-00635RO

PATIENT
  Sex: Female

DRUGS (5)
  1. SODIUM BICARBONATE [Suspect]
     Indication: EPIDURAL ANAESTHESIA
     Route: 008
  2. FENTANYL [Suspect]
     Indication: EPIDURAL ANAESTHESIA
     Route: 008
  3. EPINEPHRINE [Suspect]
     Indication: EPIDURAL ANAESTHESIA
     Route: 008
  4. MORPHINE [Suspect]
     Indication: POSTOPERATIVE ANALGESIA
  5. LIDOCAINE [Suspect]
     Indication: EPIDURAL ANAESTHESIA
     Route: 008

REACTIONS (1)
  - URINARY RETENTION [None]
